FAERS Safety Report 26126010 (Version 1)
Quarter: 2025Q4

REPORT INFORMATION
  Report Type: Spontaneous
  Country: US (occurrence: US)
  Receive Date: 20251205
  Receipt Date: 20251205
  Transmission Date: 20260117
  Serious: Yes (Life-Threatening)
  Sender: OTSUKA
  Company Number: US-OTSUKA-2025_029822

PATIENT
  Age: 45 Year
  Sex: Male

DRUGS (1)
  1. REXULTI [Suspect]
     Active Substance: BREXPIPRAZOLE
     Indication: Bipolar disorder
     Dosage: 1 DF, DAILY (1MG, 1 TABLET DAILY)
     Dates: start: 20220804, end: 20250930

REACTIONS (5)
  - Head injury [Recovered/Resolved]
  - Cognitive disorder [Recovered/Resolved]
  - Cerebrovascular accident [Recovered/Resolved]
  - Fall [Recovered/Resolved]
  - Product use in unapproved indication [Unknown]

NARRATIVE: CASE EVENT DATE: 20220804
